FAERS Safety Report 13400010 (Version 1)
Quarter: 2017Q2

REPORT INFORMATION
  Report Type: Spontaneous
  Country: US (occurrence: US)
  Receive Date: 20170404
  Receipt Date: 20170404
  Transmission Date: 20170830
  Serious: No
  Sender: FDA-Public Use
  Company Number: US-ORION CORPORATION ORION PHARMA-ENT 2016-0026

PATIENT
  Sex: Male

DRUGS (10)
  1. TAMULOSIN [Concomitant]
     Active Substance: TAMSULOSIN
     Route: 065
  2. COMTAN [Suspect]
     Active Substance: ENTACAPONE
     Route: 048
  3. ZOFRAN [Concomitant]
     Active Substance: ONDANSETRON HYDROCHLORIDE
     Route: 065
  4. SINEMET [Concomitant]
     Active Substance: CARBIDOPA\LEVODOPA
     Route: 065
  5. MEPRAZOLE [Concomitant]
     Route: 065
  6. FENOFIBRIC ACID. [Concomitant]
     Active Substance: FENOFIBRIC ACID
     Route: 065
  7. MECLIZINE [Concomitant]
     Active Substance: MECLIZINE HYDROCHLORIDE
     Route: 065
  8. TRAZODONE [Concomitant]
     Active Substance: TRAZODONE HYDROCHLORIDE
     Route: 065
  9. EFFEXOR [Concomitant]
     Active Substance: VENLAFAXINE HYDROCHLORIDE
     Route: 065
  10. PROSCAR [Concomitant]
     Active Substance: FINASTERIDE
     Route: 065

REACTIONS (5)
  - Feeding disorder [Unknown]
  - Dysgeusia [Unknown]
  - Ageusia [Unknown]
  - Product taste abnormal [Unknown]
  - Product quality issue [Unknown]
